FAERS Safety Report 20143931 (Version 4)
Quarter: 2021Q4

REPORT INFORMATION
  Report Type: Spontaneous
  Country: CN (occurrence: CN)
  Receive Date: 20211203
  Receipt Date: 20211222
  Transmission Date: 20220303
  Serious: Yes (Other)
  Sender: FDA-Public Use
  Company Number: CN-SA-SAC20211129001165

PATIENT

DRUGS (2)
  1. PRALUENT [Suspect]
     Active Substance: ALIROCUMAB
     Indication: Left ventricular hypertrophy
     Dosage: 1 VIAL, BIW
     Dates: start: 20211124
  2. PRALUENT [Suspect]
     Active Substance: ALIROCUMAB
     Indication: Vascular occlusion

REACTIONS (7)
  - Palpitations [Unknown]
  - Tachycardia [Recovered/Resolved]
  - Abdominal injury [Unknown]
  - Blood pressure increased [Unknown]
  - Tremor [Unknown]
  - Anxiety [Unknown]
  - Anger [Unknown]

NARRATIVE: CASE EVENT DATE: 20210101
